FAERS Safety Report 6516241-3 (Version None)
Quarter: 2009Q4

REPORT INFORMATION
  Report Type: 
  Country: None (occurrence: None)
  Receive Date: 20091223
  Receipt Date: 20091211
  Transmission Date: 20100525
  Serious: Yes (Death, Hospitalization)
  Sender: FDA-Public Use
  Company Number: US-SANOFI-AVENTIS-F01200900757

PATIENT
  Age: 47 Year
  Sex: Male

DRUGS (8)
  1. OXALIPLATIN [Suspect]
     Indication: RECTAL CANCER
     Dosage: UNIT DOSE: 85 MG/M2
     Route: 042
     Dates: start: 20090417, end: 20090417
  2. OXALIPLATIN [Suspect]
     Dosage: UNIT DOSE: 85 MG/M2
     Route: 042
     Dates: start: 20090612, end: 20090612
  3. CAPECITABINE [Suspect]
     Route: 048
     Dates: start: 20090417
  4. CAPECITABINE [Suspect]
     Route: 048
     Dates: start: 20090612
  5. AVASTIN [Suspect]
     Dosage: UNIT DOSE: 5 MG/KG
     Route: 042
     Dates: start: 20090612, end: 20090612
  6. AVASTIN [Suspect]
     Dosage: UNIT DOSE: 5 MG/KG
     Route: 042
     Dates: start: 20090417, end: 20090417
  7. COLACE [Suspect]
     Dosage: DOSE TEXT: AS DIRECTED
  8. VICODIN [Concomitant]

REACTIONS (8)
  - ASTHENIA [None]
  - CEREBROVASCULAR ACCIDENT [None]
  - DEHYDRATION [None]
  - NAUSEA [None]
  - RECTAL CANCER STAGE IV [None]
  - SEPTIC SHOCK [None]
  - TACHYCARDIA [None]
  - VOMITING [None]
